FAERS Safety Report 7009567-0 (Version None)
Quarter: 2010Q3

REPORT INFORMATION
  Report Type: 
  Country: None (occurrence: None)
  Receive Date: 20100923
  Receipt Date: 20100920
  Transmission Date: 20110219
  Serious: Yes (Death)
  Sender: FDA-Public Use
  Company Number: PHHY2010US62875

PATIENT
  Sex: Female
  Weight: 50.794 kg

DRUGS (1)
  1. EXJADE [Suspect]
     Indication: NEOPLASM
     Dosage: 1000 MG, DAILY
     Route: 048
     Dates: start: 20090604

REACTIONS (1)
  - DEATH [None]
